FAERS Safety Report 6164220-0 (Version None)
Quarter: 2009Q2

REPORT INFORMATION
  Report Type: 
  Country: None (occurrence: None)
  Receive Date: 20090422
  Receipt Date: 20090420
  Transmission Date: 20091009
  Serious: Yes (Death, Hospitalization, Other)
  Sender: FDA-Public Use
  Company Number: PHEH2009US03920

PATIENT
  Sex: Male

DRUGS (12)
  1. ZOMETA [Suspect]
     Dosage: UNK
     Dates: start: 20081006, end: 20081006
  2. ADVAIR HFA [Concomitant]
  3. LOPERAMIDE HCL [Concomitant]
  4. LORAZEPAM [Concomitant]
  5. PROCHLORPERAZINE [Concomitant]
  6. MAGNESIUM OXIDE [Concomitant]
  7. MORPHINE [Concomitant]
  8. OXYCODONE HCL [Concomitant]
  9. POLYETHYLENE GLYCOL [Concomitant]
  10. SENNA-S (DOCUSATE SODIUM/SENNOSIDES) [Concomitant]
  11. SERTRALINE HCL [Concomitant]
  12. WARFARIN SODIUM [Concomitant]

REACTIONS (6)
  - ALPHA 1 FOETOPROTEIN INCREASED [None]
  - FATIGUE [None]
  - MALIGNANT NEOPLASM PROGRESSION [None]
  - METASTASIS [None]
  - MUSCULOSKELETAL PAIN [None]
  - STEM CELL TRANSPLANT [None]
